FAERS Safety Report 21704998 (Version 1)
Quarter: 2022Q4

REPORT INFORMATION
  Report Type: Spontaneous
  Country: US (occurrence: US)
  Receive Date: 20221209
  Receipt Date: 20221209
  Transmission Date: 20230113
  Serious: No
  Sender: FDA-Public Use
  Company Number: US-BAYER-2022A167601

PATIENT
  Sex: Male

DRUGS (2)
  1. MIRALAX [Suspect]
     Active Substance: POLYETHYLENE GLYCOL 3350
     Indication: Product used for unknown indication
     Dosage: UNK UNK, QD
     Route: 048
  2. METAMUCIL [Suspect]
     Active Substance: PLANTAGO SEED
     Dosage: EVERY 2 DAYS.

REACTIONS (1)
  - Incorrect product administration duration [Unknown]
